FAERS Safety Report 5490301-0 (Version None)
Quarter: 2007Q4

REPORT INFORMATION
  Report Type: 
  Country: None (occurrence: None)
  Receive Date: 20071018
  Receipt Date: 20071009
  Transmission Date: 20080405
  Serious: Yes (Other)
  Sender: FDA-Public Use
  Company Number: US-ELI_LILLY_AND_COMPANY-US200710002296

PATIENT
  Age: 86 Year
  Sex: Female

DRUGS (3)
  1. EVISTA [Suspect]
     Indication: OSTEOPOROSIS
     Dosage: 60 MG, UNK
     Route: 048
  2. FOSAMAX [Concomitant]
  3. ACTONEL [Concomitant]

REACTIONS (4)
  - BONE PAIN [None]
  - DRUG INEFFECTIVE [None]
  - PAIN [None]
  - THORACIC VERTEBRAL FRACTURE [None]
